FAERS Safety Report 25352375 (Version 1)
Quarter: 2025Q2

REPORT INFORMATION
  Report Type: Other
  Country: CN (occurrence: CN)
  Receive Date: 20250523
  Receipt Date: 20250523
  Transmission Date: 20250717
  Serious: Yes (Other)
  Sender: PARATEK PHARMACEUTICALS
  Company Number: CN-PARATEK PHARMACEUTICALS, INC.-2025PTK00637

PATIENT
  Age: 73 Year
  Sex: Male

DRUGS (2)
  1. NUZYRA [Suspect]
     Active Substance: OMADACYCLINE
     Indication: Pneumonia
     Dosage: 0.1 G, QD
     Route: 041
     Dates: start: 20250419, end: 20250428
  2. HERBALS [Suspect]
     Active Substance: HERBALS
     Indication: Decreased appetite
     Dosage: 10 ML, TID
     Route: 048
     Dates: start: 20250421, end: 20250428

REACTIONS (4)
  - Dermatitis allergic [Not Recovered/Not Resolved]
  - Pruritus [Not Recovered/Not Resolved]
  - Rash [Not Recovered/Not Resolved]
  - Ocular discomfort [Not Recovered/Not Resolved]

NARRATIVE: CASE EVENT DATE: 20250427
